FAERS Safety Report 8916301 (Version 2)
Quarter: 2020Q3

REPORT INFORMATION
  Report Type: Spontaneous
  Country: FI (occurrence: FI)
  Receive Date: 20121120
  Receipt Date: 20121227
  Transmission Date: 20201104
  Serious: Yes (Hospitalization)
  Sender: FDA-Public Use
  Company Number: PHHY2012FI104869

PATIENT
  Age: 38 Year
  Sex: Female

DRUGS (7)
  1. FUROSEMIDE. [Suspect]
     Active Substance: FUROSEMIDE
     Indication: DIURETIC THERAPY
     Dosage: 10 MG, UNK
     Route: 040
  2. LABETALOL [Suspect]
     Active Substance: LABETALOL\LABETALOL HYDROCHLORIDE
     Indication: PRE-ECLAMPSIA
     Dosage: 100 MG, TID
  3. FUROSEMIDE. [Suspect]
     Active Substance: FUROSEMIDE
     Dosage: 40 MG, UNK
     Route: 040
  4. FUROSEMIDE. [Suspect]
     Active Substance: FUROSEMIDE
     Dosage: 100 MG, UNK
     Route: 040
  5. BETAMETHASONE. [Suspect]
     Active Substance: BETAMETHASONE
  6. LABETALOL [Suspect]
     Active Substance: LABETALOL\LABETALOL HYDROCHLORIDE
     Dosage: 200 MG, TID
  7. PIVMECILLINAM HYDROCHLORIDE. [Suspect]
     Active Substance: PIVMECILLINAM HYDROCHLORIDE
     Indication: URINARY TRACT INFECTION

REACTIONS (15)
  - Placental insufficiency [Recovered/Resolved]
  - Dyspnoea [Recovered/Resolved]
  - Abdominal pain upper [Recovered/Resolved]
  - Abdominal discomfort [Recovered/Resolved]
  - Abdominal tenderness [Recovered/Resolved]
  - Haematoma [Recovered/Resolved]
  - Exposure during pregnancy [Unknown]
  - Haemolytic uraemic syndrome [Recovered/Resolved]
  - Hypoxia [Recovered/Resolved]
  - HELLP syndrome [Recovered/Resolved]
  - Visual impairment [Recovered/Resolved]
  - Disseminated intravascular coagulation [Recovered/Resolved]
  - Peripheral swelling [Recovered/Resolved]
  - Placenta praevia haemorrhage [Recovered/Resolved]
  - Urine output decreased [Recovered/Resolved]
